APPROVED DRUG PRODUCT: METAPROTERENOL SULFATE
Active Ingredient: METAPROTERENOL SULFATE
Strength: 10MG/5ML
Dosage Form/Route: SYRUP;ORAL
Application: A072761 | Product #001
Applicant: COSETTE PHARMACEUTICALS INC
Approved: Feb 27, 1992 | RLD: No | RS: No | Type: DISCN